FAERS Safety Report 4446365-6 (Version None)
Quarter: 2004Q3

REPORT INFORMATION
  Report Type: 
  Country: None (occurrence: None)
  Receive Date: 20040902
  Receipt Date: 20040817
  Transmission Date: 20050211
  Serious: Yes (Other)
  Sender: FDA-Public Use
  Company Number: GBS040815430

PATIENT
  Age: 46 Year
  Sex: Female

DRUGS (6)
  1. FLUOXETINE [Suspect]
     Indication: ANXIETY
     Dosage: 20 MG EVERY OTHER DAY
     Dates: end: 20040721
  2. ACETAMINOPHEN [Concomitant]
  3. CODEINE PHOSPHATE [Concomitant]
  4. ALBUTEROL [Concomitant]
  5. BECLOMETHASONE DIPROPIONATE [Concomitant]
  6. BETAHISTINE [Concomitant]

REACTIONS (2)
  - ORTHOSTATIC HYPOTENSION [None]
  - SYNCOPE VASOVAGAL [None]
